FAERS Safety Report 4688716-3 (Version None)
Quarter: 2005Q2

REPORT INFORMATION
  Report Type: 
  Country: None (occurrence: None)
  Receive Date: 20050613
  Receipt Date: 20050606
  Transmission Date: 20051028
  Serious: Yes (Hospitalization)
  Sender: FDA-Public Use
  Company Number: PHRM2005FR01742

PATIENT
  Age: 23 Year
  Sex: Female
  Weight: 76 kg

DRUGS (6)
  1. IUVACOR [Concomitant]
     Indication: CARDIAC DISORDER
     Route: 065
  2. OXYGEN [Concomitant]
  3. METEOSPASMYL [Concomitant]
     Dosage: PRN
     Route: 048
  4. LIORESAL [Suspect]
     Route: 048
     Dates: start: 19990615
  5. VENTOLIN [Concomitant]
  6. SERETIDE [Concomitant]
     Dosage: UNK, UNK

REACTIONS (11)
  - ALANINE AMINOTRANSFERASE INCREASED [None]
  - ASPARTATE AMINOTRANSFERASE INCREASED [None]
  - ASTHENIA [None]
  - BLOOD ALKALINE PHOSPHATASE INCREASED [None]
  - BLOOD BILIRUBIN INCREASED [None]
  - CHROMATURIA [None]
  - CHRONIC HEPATITIS [None]
  - CYTOLYTIC HEPATITIS [None]
  - FAECES DISCOLOURED [None]
  - JAUNDICE [None]
  - PRURITUS [None]
